FAERS Safety Report 4290218-3 (Version None)
Quarter: 2004Q1

REPORT INFORMATION
  Report Type: 
  Country: None (occurrence: None)
  Receive Date: 20040210
  Receipt Date: 20040128
  Transmission Date: 20041129
  Serious: Yes (Other)
  Sender: FDA-Public Use
  Company Number: PHFR2004GB00817

PATIENT
  Age: 57 Year
  Sex: Female

DRUGS (3)
  1. FEMARA [Suspect]
     Indication: BREAST CANCER
     Dosage: 2.5MG/DAY
     Dates: start: 20031101
  2. MAGNESIUM [Concomitant]
     Indication: MINERAL SUPPLEMENTATION
  3. ANTIHYPERTENSIVES [Concomitant]

REACTIONS (1)
  - RENAL IMPAIRMENT [None]
